FAERS Safety Report 5757528-1 (Version None)
Quarter: 2008Q2

REPORT INFORMATION
  Report Type: 
  Country: None (occurrence: None)
  Receive Date: 20080603
  Receipt Date: 20080527
  Transmission Date: 20081010
  Serious: Yes (Other)
  Sender: FDA-Public Use
  Company Number: US-GENENTECH-259232

PATIENT
  Sex: Male

DRUGS (5)
  1. AVASTIN [Suspect]
     Indication: CHOROIDAL NEOVASCULARISATION
     Dosage: 1.2 MG, UNKNOWN
     Route: 031
     Dates: start: 20071031
  2. AVASTIN [Suspect]
     Indication: MACULAR DEGENERATION
     Dosage: 1.2 MG, UNK
     Route: 031
     Dates: start: 20071128
  3. AVASTIN [Suspect]
     Dosage: 1.2 MG, UNK
     Route: 031
     Dates: start: 20080109
  4. LUCENTIS [Suspect]
     Indication: CHOROIDAL NEOVASCULARISATION
     Dosage: UNK, UNK
     Route: 031
     Dates: start: 20080227
  5. LUCENTIS [Suspect]
     Indication: MACULAR DEGENERATION
     Route: 031
     Dates: start: 20080409

REACTIONS (1)
  - DEAFNESS [None]
